FAERS Safety Report 16037795 (Version 1)
Quarter: 2019Q1

REPORT INFORMATION
  Report Type: Spontaneous
  Country: ES (occurrence: ES)
  Receive Date: 20190305
  Receipt Date: 20190305
  Transmission Date: 20190418
  Serious: Yes (Hospitalization, Other)
  Sender: FDA-Public Use
  Company Number: ES-PFIZER INC-2019093935

PATIENT
  Age: 32 Year
  Sex: Male

DRUGS (8)
  1. AMPHETAMINE [Concomitant]
     Active Substance: AMPHETAMINE
     Dosage: UNK
  2. CANNABIS [Concomitant]
     Active Substance: CANNABIS SATIVA SUBSP. INDICA TOP
     Indication: HYPNOTHERAPY
     Dosage: UNK UNK, DAILY (CURRENTLY BETWEEN 2-4 JOINTS A DAY)
  3. ECSTASY [Concomitant]
     Active Substance: MIDOMAFETAMINE
     Dosage: UNK
  4. PREGABALIN. [Concomitant]
     Active Substance: PREGABALIN
     Dosage: UNK (INGESTING ABOUT 20 CAPSULES OF 150 MG (EQUIVALENT TO APPROXIMATELY 3 G) AT EACH INTAKE)
     Route: 048
  5. LSD [Concomitant]
     Active Substance: LYSERGIDE
     Dosage: UNK
  6. PREGABALIN. [Concomitant]
     Active Substance: PREGABALIN
     Indication: INSOMNIA
     Dosage: 150 MG, UNK
  7. ALPRAZOLAM. [Suspect]
     Active Substance: ALPRAZOLAM
     Dosage: 8 MG, DAILY (ALPRAZOLAM, UP TO 8 MG/DAY)
  8. COCAINE [Concomitant]
     Active Substance: COCAINE
     Dosage: UNK (OCCASIONAL INTRANASAL USE OF COCAINE USUALLY ON WEEKENDS)
     Route: 045

REACTIONS (6)
  - Hyperhidrosis [Unknown]
  - Insomnia [Unknown]
  - Drug abuse [Recovered/Resolved]
  - Intentional product misuse [Unknown]
  - Tremor [Unknown]
  - Irritability [Unknown]
